FAERS Safety Report 11237484 (Version 1)
Quarter: 2015Q3

REPORT INFORMATION
  Report Type: Spontaneous
  Country: US (occurrence: US)
  Receive Date: 20150703
  Receipt Date: 20150703
  Transmission Date: 20151125
  Serious: No
  Sender: FDA-Public Use
  Company Number: US-BIOGENIDEC-2015BI092079

PATIENT
  Age: 29 Year
  Sex: Female

DRUGS (1)
  1. AVONEX [Suspect]
     Active Substance: INTERFERON BETA-1A
     Indication: MULTIPLE SCLEROSIS
     Route: 030
     Dates: start: 200409

REACTIONS (5)
  - Pyrexia [Unknown]
  - Insomnia [Unknown]
  - Injection site pain [Unknown]
  - Fatigue [Unknown]
  - Hypokinesia [Unknown]

NARRATIVE: CASE EVENT DATE: 200409
